FAERS Safety Report 12395815 (Version 1)
Quarter: 2016Q2

REPORT INFORMATION
  Report Type: Not Available
  Country: US (occurrence: US)
  Receive Date: 20160523
  Receipt Date: 20160523
  Transmission Date: 20160815
  Serious: No
  Sender: FDA-Public Use
  Company Number: US-ANIPHARMA-2016-US-003398

PATIENT
  Age: 66 Year
  Sex: Female
  Weight: 82.55 kg

DRUGS (6)
  1. MELATONIN [Suspect]
     Active Substance: MELATONIN
     Dosage: UNKNOWN
     Route: 065
  2. LITHOBID [Suspect]
     Active Substance: LITHIUM CARBONATE
     Route: 048
     Dates: start: 1985
  3. CINNAMON. [Suspect]
     Active Substance: CINNAMON
     Dosage: UNKNOWN
     Route: 065
  4. VALERIAN ROOT [Suspect]
     Active Substance: VALERIAN
     Dosage: UNKNOWN
     Route: 065
  5. ST. JOHN^S WORT [Suspect]
     Active Substance: ST. JOHN^S WORT
     Dosage: UNKNOWN
     Route: 065
  6. SYNTHROID [Concomitant]
     Active Substance: LEVOTHYROXINE SODIUM
     Dosage: UNKNOWN
     Route: 065

REACTIONS (4)
  - Agitation [Unknown]
  - Drug interaction [Recovered/Resolved]
  - Depression [Recovered/Resolved]
  - Antipsychotic drug level below therapeutic [Recovered/Resolved]

NARRATIVE: CASE EVENT DATE: 20150419
